FAERS Safety Report 9841032 (Version 1)
Quarter: 2014Q1

REPORT INFORMATION
  Report Type: Report from Study
  Country: GR (occurrence: GR)
  Receive Date: 20140124
  Receipt Date: 20140124
  Transmission Date: 20141002
  Serious: Yes (Death)
  Sender: FDA-Public Use
  Company Number: GR-ASTELLAS-2014US000678

PATIENT
  Age: 70 Year
  Sex: Male

DRUGS (3)
  1. ERLOTINIB TABLET [Suspect]
     Indication: LARGE CELL LUNG CANCER
     Dosage: 150 MG, UID/QD
     Route: 048
     Dates: start: 20130703
  2. CARBOPLATIN [Suspect]
     Indication: LARGE CELL LUNG CANCER
     Dosage: 260 UNK, TREATMENT CYCLE RECEIVED :3
     Route: 065
     Dates: start: 20130423, end: 20130611
  3. ZURCAZOL [Concomitant]
     Indication: PRODUCT USED FOR UNKNOWN INDICATION
     Dosage: 40 (NOS) BT (NOS) 1PER CYCLE
     Route: 065

REACTIONS (1)
  - Death [Fatal]
